FAERS Safety Report 6405806-5 (Version None)
Quarter: 2009Q4

REPORT INFORMATION
  Report Type: 
  Country: None (occurrence: None)
  Receive Date: 20091019
  Receipt Date: 20091009
  Transmission Date: 20100525
  Serious: Yes (Hospitalization)
  Sender: FDA-Public Use
  Company Number: US-BRISTOL-MYERS SQUIBB COMPANY-14814024

PATIENT
  Age: 55 Year
  Sex: Male
  Weight: 67 kg

DRUGS (8)
  1. IXABEPILONE [Suspect]
     Indication: NON-SMALL CELL LUNG CANCER
     Dosage: CYCLE/COURSE NUM:2
     Dates: start: 20090903
  2. CARBOPLATIN [Suspect]
     Indication: NON-SMALL CELL LUNG CANCER
     Dosage: CYCLE/COURSE:2
     Dates: start: 20090903
  3. BEVACIZUMAB [Suspect]
     Indication: NON-SMALL CELL LUNG CANCER
     Dosage: CYCLE/COURSE:2
     Dates: start: 20090903
  4. DILANTIN [Concomitant]
     Route: 048
  5. COMBIVENT [Concomitant]
     Dosage: 2PUFFS/DAY
     Route: 055
  6. COMPAZINE [Concomitant]
     Route: 048
  7. BROMAZEPAM [Concomitant]
     Dosage: 1 DOSAGE FORM=.5-1MG
     Route: 048
  8. LISINOPRIL [Concomitant]
     Route: 048
     Dates: end: 20091008

REACTIONS (6)
  - DYSPNOEA [None]
  - HYPOXIA [None]
  - INFECTION [None]
  - NEUTROPHIL COUNT DECREASED [None]
  - PNEUMONIA [None]
  - WHITE BLOOD CELL COUNT DECREASED [None]
